FAERS Safety Report 7943719-8 (Version None)
Quarter: 2011Q4

REPORT INFORMATION
  Report Type: 
  Country: None (occurrence: None)
  Receive Date: 20111128
  Receipt Date: 20111123
  Transmission Date: 20120403
  Serious: Yes (Hospitalization)
  Sender: FDA-Public Use
  Company Number: MX-ABBOTT-11P-107-0875361-00

PATIENT
  Age: 69 Year
  Sex: Male
  Weight: 95 kg

DRUGS (1)
  1. ZEMPLAR [Suspect]
     Indication: HYPERPARATHYROIDISM
     Dosage: 6 CAPSULES
     Dates: start: 20111110, end: 20111115

REACTIONS (4)
  - HYPERAESTHESIA [None]
  - ASTHENIA [None]
  - VOMITING [None]
  - NAUSEA [None]
